FAERS Safety Report 6752271-4 (Version None)
Quarter: 2010Q2

REPORT INFORMATION
  Report Type: 
  Country: None (occurrence: None)
  Receive Date: 20100602
  Receipt Date: 20100527
  Transmission Date: 20101027
  Serious: Yes (Other)
  Sender: FDA-Public Use
  Company Number: CA-JNJFOC-20100407951

PATIENT
  Sex: Male
  Weight: 127.01 kg

DRUGS (6)
  1. CONCERTA [Suspect]
     Indication: ATTENTION DEFICIT/HYPERACTIVITY DISORDER
     Route: 048
  2. CONCERTA [Suspect]
     Route: 048
  3. CONCERTA [Suspect]
     Route: 048
  4. CONCERTA [Suspect]
     Route: 048
  5. DICETEL [Concomitant]
     Route: 065
  6. TESTOSTERONE [Concomitant]
     Route: 065

REACTIONS (7)
  - ABDOMINAL DISCOMFORT [None]
  - ALTERED STATE OF CONSCIOUSNESS [None]
  - DISTURBANCE IN ATTENTION [None]
  - FATIGUE [None]
  - FEELING ABNORMAL [None]
  - STARING [None]
  - VISUAL IMPAIRMENT [None]
